FAERS Safety Report 17173744 (Version 3)
Quarter: 2021Q1

REPORT INFORMATION
  Report Type: Report from Study
  Country: BR (occurrence: BR)
  Receive Date: 20191219
  Receipt Date: 20210226
  Transmission Date: 20210419
  Serious: Yes (Death, Hospitalization, Other)
  Sender: FDA-Public Use
  Company Number: BR-DSJP-DSE-2019-150327

PATIENT
  Age: 89 Year
  Sex: Female
  Weight: 53 kg

DRUGS (12)
  1. LASIX [Concomitant]
     Active Substance: FUROSEMIDE
     Indication: HYPERTENSION
     Dosage: UNK
     Route: 065
     Dates: start: 2000
  2. LASIX [Concomitant]
     Active Substance: FUROSEMIDE
     Dosage: UNK
     Dates: start: 20200102
  3. RIVOTRIL [Concomitant]
     Active Substance: CLONAZEPAM
     Indication: DEPRESSION
  4. METOPROLOL. [Concomitant]
     Active Substance: METOPROLOL
     Indication: HYPERTENSION
     Dosage: UNK
     Route: 065
     Dates: start: 20200102
  5. RIVOTRIL [Concomitant]
     Active Substance: CLONAZEPAM
     Indication: ANXIETY
     Dosage: UNK
     Route: 065
     Dates: start: 20191128
  6. LOSARTAN. [Concomitant]
     Active Substance: LOSARTAN
     Indication: HYPERTENSION
     Dosage: UNK
     Route: 065
     Dates: start: 2000
  7. DIGOXINE [Concomitant]
     Active Substance: DIGOXIN
     Indication: HYPERTENSION
     Dosage: UNK
     Route: 065
     Dates: start: 20200102
  8. EDOXABAN [Suspect]
     Active Substance: EDOXABAN TOSYLATE
     Indication: ATRIAL FIBRILLATION
     Dosage: 30 MG, QD
     Route: 065
     Dates: start: 20191120, end: 202001
  9. PRISTIQ EXTENDED?RELEASE [Concomitant]
     Active Substance: DESVENLAFAXINE SUCCINATE
     Indication: ANXIETY
     Dosage: UNK
     Route: 065
     Dates: start: 1987
  10. PRISTIQ EXTENDED?RELEASE [Concomitant]
     Active Substance: DESVENLAFAXINE SUCCINATE
     Indication: DEPRESSION
  11. EDOXABAN [Suspect]
     Active Substance: EDOXABAN TOSYLATE
     Dosage: 60 MG, QD
     Route: 065
  12. SPIRONOLACTONE. [Concomitant]
     Active Substance: SPIRONOLACTONE
     Indication: HYPERTENSION
     Dosage: UNK
     Route: 065
     Dates: start: 20191128

REACTIONS (3)
  - Death [Fatal]
  - Cardiac failure [Unknown]
  - Respiratory disorder [Recovering/Resolving]

NARRATIVE: CASE EVENT DATE: 2019
